FAERS Safety Report 9536465 (Version 1)
Quarter: 2013Q2

REPORT INFORMATION
  Report Type: Spontaneous
  Country: US (occurrence: None)
  Receive Date: 20130507
  Receipt Date: 20130507
  Transmission Date: 20140414
  Serious: No
  Sender: FDA-Public Use
  Company Number: PHEH2012US024230

PATIENT
  Age: 77 Year
  Sex: Female

DRUGS (1)
  1. AFINITOR (RAD) UNKNOWN [Suspect]
     Indication: BREAST CANCER METASTATIC
     Route: 048
     Dates: start: 20121106

REACTIONS (5)
  - Hypophagia [None]
  - Dysgeusia [None]
  - Tongue disorder [None]
  - Decreased appetite [None]
  - Weight decreased [None]
